FAERS Safety Report 14950391 (Version 1)
Quarter: 2018Q2

REPORT INFORMATION
  Report Type: Report from Study
  Country: BR (occurrence: BR)
  Receive Date: 20180530
  Receipt Date: 20180530
  Transmission Date: 20180711
  Serious: Yes (Other)
  Sender: FDA-Public Use
  Company Number: BR-UCBSA-2017047192

PATIENT
  Age: 65 Year
  Sex: Female
  Weight: 55 kg

DRUGS (11)
  1. FORXIGA [Concomitant]
     Active Substance: DAPAGLIFLOZIN
     Indication: DIABETES MELLITUS
     Dosage: 10 MG, ONCE DAILY (QD)
     Route: 048
     Dates: start: 2013
  2. IODINE. [Concomitant]
     Active Substance: IODINE
     Indication: CROHN^S DISEASE
     Dosage: 1 DF, ONCE DAILY (QD)
     Route: 048
     Dates: start: 201710
  3. TRAMADOL. [Concomitant]
     Active Substance: TRAMADOL
     Indication: PAIN
     Dosage: UNK, AS NEEDED (PRN)
     Route: 048
     Dates: start: 201803
  4. DIPYRONE [Concomitant]
     Active Substance: DIPYRONE
     Indication: MALAISE
     Dosage: UNK
  5. OTILONIUM BROMIDE [Concomitant]
     Active Substance: OTILONIUM BROMIDE
     Indication: CROHN^S DISEASE
     Dosage: 40 MG, ONCE DAILY (QD)
     Route: 048
     Dates: start: 201708
  6. PROBIOTIC [Concomitant]
     Active Substance: PROBIOTICS NOS
     Indication: CROHN^S DISEASE
     Dosage: 1 DF, ONCE DAILY (QD)
     Route: 048
     Dates: start: 201710
  7. STILNOX [Concomitant]
     Active Substance: ZOLPIDEM TARTRATE
     Indication: SLEEP DISORDER
     Dosage: 12.5 MG, ONCE DAILY (QD)
     Route: 048
     Dates: start: 2015
  8. METICORTEN [Concomitant]
     Active Substance: PREDNISONE
     Indication: C-REACTIVE PROTEIN INCREASED
     Dosage: UNK
  9. CERTOLIZUMAB PEGOL [Suspect]
     Active Substance: CERTOLIZUMAB PEGOL
     Indication: CROHN^S DISEASE
     Dosage: UNK
     Dates: start: 20170915
  10. GLIFAGE [Concomitant]
     Active Substance: METFORMIN HYDROCHLORIDE
     Indication: DIABETES MELLITUS
     Dosage: 500 MG, AS NEEDED (PRN)
     Route: 048
     Dates: start: 2015
  11. DUSPATALIN [Concomitant]
     Active Substance: MEBEVERINE HYDROCHLORIDE
     Indication: CROHN^S DISEASE
     Dosage: 200 MG, ONCE DAILY (QD)
     Route: 048
     Dates: start: 201708

REACTIONS (13)
  - Intestinal haemorrhage [Unknown]
  - C-reactive protein increased [Unknown]
  - Malaise [Not Recovered/Not Resolved]
  - Malnutrition [Unknown]
  - Pain in extremity [Recovered/Resolved]
  - Abdominal pain [Recovering/Resolving]
  - Rash [Recovered/Resolved]
  - Weight decreased [Recovered/Resolved]
  - Erythema [Recovered/Resolved]
  - Abdominal distension [Not Recovered/Not Resolved]
  - Hyperglycaemia [Recovered/Resolved]
  - Anaemia [Unknown]
  - Inflammation [Unknown]

NARRATIVE: CASE EVENT DATE: 20170915
